FAERS Safety Report 7022158-0 (Version None)
Quarter: 2010Q3

REPORT INFORMATION
  Report Type: 
  Country: None (occurrence: None)
  Receive Date: 20100930
  Receipt Date: 20100921
  Transmission Date: 20110219
  Serious: Yes (Other)
  Sender: FDA-Public Use
  Company Number: PHHY2009ZA18823

PATIENT
  Sex: Male

DRUGS (6)
  1. ACLASTA [Suspect]
     Dosage: 5 MG
     Route: 042
     Dates: start: 20090301
  2. ACLASTA [Suspect]
     Dosage: 5 MG / 100 ML
     Dates: start: 20090424
  3. FLORINEF [Concomitant]
     Dosage: UNK
  4. CALTRATE PLUS [Concomitant]
     Dosage: UNK
  5. MAGNESIUM [Concomitant]
     Dosage: UNK
  6. LANSOLOC [Concomitant]
     Dosage: UNK

REACTIONS (6)
  - ADDISON'S DISEASE [None]
  - FEELING ABNORMAL [None]
  - GAIT DISTURBANCE [None]
  - PAIN [None]
  - RENAL FAILURE [None]
  - WHEELCHAIR USER [None]
